FAERS Safety Report 4423580-9 (Version None)
Quarter: 2004Q3

REPORT INFORMATION
  Report Type: 
  Country: None (occurrence: None)
  Receive Date: 20040719
  Receipt Date: 20040426
  Transmission Date: 20050211
  Serious: Yes (Life-Threatening, Hospitalization)
  Sender: FDA-Public Use
  Company Number: M04-INT-073

PATIENT
  Age: 70 Year
  Sex: Male

DRUGS (6)
  1. INTEGRILIN [Suspect]
     Dosage: 2 + 180MCG/KG X 1, IV BOLUS
     Route: 040
     Dates: start: 20040423
  2. INTEGRILIN [Suspect]
     Dosage: 2 + 180MCG/KG X 1, IV BOLUS
     Route: 040
     Dates: start: 20040423
  3. ASPIRIN [Concomitant]
  4. HEAPRIN (HEPARIN) [Concomitant]
  5. PLAVIX [Concomitant]
  6. NITROGLYCERIN [Concomitant]

REACTIONS (3)
  - COMA [None]
  - HAEMORRHAGE INTRACRANIAL [None]
  - HEADACHE [None]
